FAERS Safety Report 9748737 (Version 1)
Quarter: 2013Q4

REPORT INFORMATION
  Report Type: Spontaneous
  Country: IT (occurrence: IT)
  Receive Date: 20131212
  Receipt Date: 20131212
  Transmission Date: 20140711
  Serious: Yes (Hospitalization)
  Sender: FDA-Public Use
  Company Number: IT-ASTRAZENECA-2013SE88435

PATIENT
  Age: 13233 Day
  Sex: Male

DRUGS (2)
  1. LIDOCAINE [Suspect]
     Route: 008
     Dates: start: 20131111, end: 20131111
  2. KENACORT [Suspect]
     Dosage: 40MG/ML INJECTION SUSPENSION 1 DF
     Route: 008
     Dates: start: 20131111, end: 20131111

REACTIONS (3)
  - CSF pressure decreased [Recovering/Resolving]
  - Headache [Recovering/Resolving]
  - Paraesthesia [Recovering/Resolving]
